FAERS Safety Report 8606801 (Version 3)
Quarter: 2014Q1

REPORT INFORMATION
  Report Type: Spontaneous
  Country: UY (occurrence: US)
  Receive Date: 20120611
  Receipt Date: 20140114
  Transmission Date: 20141002
  Serious: Yes (Hospitalization)
  Sender: FDA-Public Use
  Company Number: US-ASTRAZENECA-2012SE35910

PATIENT
  Age: 45 Year
  Sex: Female

DRUGS (8)
  1. NEXIUM [Suspect]
     Indication: DYSPEPSIA
     Route: 048
     Dates: start: 2000
  2. NEXIUM [Suspect]
     Indication: DYSPEPSIA
     Route: 048
     Dates: start: 20060331
  3. ZANTAC [Concomitant]
  4. HCTZ [Concomitant]
     Indication: DIURETIC THERAPY
  5. SIMVASTATIN [Concomitant]
     Indication: BLOOD CHOLESTEROL
  6. ALBUTEROL NEBULIZER [Concomitant]
     Indication: RESPIRATORY DISORDER
  7. NEBULIZER [Concomitant]
     Indication: RESPIRATORY DISORDER
  8. POT-CL MICRO [Concomitant]

REACTIONS (10)
  - Intervertebral disc protrusion [Unknown]
  - Arthropathy [Unknown]
  - Osteoporosis [Unknown]
  - Arthritis [Unknown]
  - Bone disorder [Unknown]
  - Bronchitis [Unknown]
  - Foot fracture [Unknown]
  - Carpal tunnel syndrome [Unknown]
  - Urinary tract infection [Unknown]
  - Osteoarthritis [Unknown]
